FAERS Safety Report 22101578 (Version 1)
Quarter: 2023Q1

REPORT INFORMATION
  Report Type: Spontaneous
  Country: BE (occurrence: BE)
  Receive Date: 20230316
  Receipt Date: 20230316
  Transmission Date: 20230417
  Serious: Yes (Other)
  Sender: FDA-Public Use
  Company Number: BE-CELLTRION INC.-2023BE005171

PATIENT

DRUGS (3)
  1. BEVACIZUMAB [Suspect]
     Active Substance: BEVACIZUMAB
     Indication: Respiratory papilloma
     Dosage: 10 MG/KG
     Route: 042
     Dates: start: 20170907
  2. MITOMYCIN C [Concomitant]
     Active Substance: MITOMYCIN
  3. CIDOFOVIR [Suspect]
     Active Substance: CIDOFOVIR

REACTIONS (3)
  - Neutropenia [Unknown]
  - Proteinuria [Unknown]
  - Off label use [Unknown]
